FAERS Safety Report 5845484-7 (Version None)
Quarter: 2008Q3

REPORT INFORMATION
  Report Type: 
  Country: None (occurrence: None)
  Receive Date: 20080814
  Receipt Date: 20080807
  Transmission Date: 20090109
  Serious: Yes (Other)
  Sender: FDA-Public Use
  Company Number: US-ASTRAZENECA-2006UW18630

PATIENT
  Age: 46 Year
  Sex: Female
  Weight: 88.9 kg

DRUGS (7)
  1. SEROQUEL [Suspect]
     Indication: BIPOLAR DISORDER
     Dosage: 100-800 MG/DAY
     Route: 048
     Dates: start: 20010615, end: 20061208
  2. ESKALITH CR [Concomitant]
  3. VISTARIL [Concomitant]
  4. VICODIN [Concomitant]
     Indication: PAIN
  5. TRILEPTAL [Concomitant]
     Indication: BIPOLAR II DISORDER
     Route: 048
     Dates: start: 20020513, end: 20050525
  6. DEPAKOTE [Concomitant]
     Indication: BIPOLAR II DISORDER
     Route: 048
     Dates: start: 20000328, end: 20001114
  7. LOXITANE [Concomitant]
     Indication: HALLUCINATION
     Dosage: 25-75 MG
     Route: 048
     Dates: start: 19870225, end: 20010625

REACTIONS (1)
  - BREAST CANCER [None]
